FAERS Safety Report 5870461-X (Version None)
Quarter: 2008Q3

REPORT INFORMATION
  Report Type: 
  Country: None (occurrence: None)
  Receive Date: 20080904
  Receipt Date: 20071008
  Transmission Date: 20090109
  Serious: No
  Sender: FDA-Public Use
  Company Number: US-BRISTOL-MYERS SQUIBB COMPANY-13932496

PATIENT
  Age: 70 Year
  Sex: Female
  Weight: 73 kg

DRUGS (8)
  1. DEFINITY [Suspect]
     Indication: ECHOCARDIOGRAM
     Dosage: 1 DOSAGE FORM = 1CC(1.5 CC IN 5 CC OF NORMAL SALINE)
     Dates: start: 20071005, end: 20071005
  2. INSULIN [Concomitant]
  3. POTASSIUM CHLORIDE [Concomitant]
  4. COMPAZINE [Concomitant]
  5. RESTORIL [Concomitant]
  6. COLACE [Concomitant]
  7. PREDNISONE TAB [Concomitant]
  8. REVATIO [Concomitant]

REACTIONS (1)
  - BACK PAIN [None]
